FAERS Safety Report 24902102 (Version 1)
Quarter: 2025Q1

REPORT INFORMATION
  Report Type: Spontaneous
  Country: AR (occurrence: AR)
  Receive Date: 20250129
  Receipt Date: 20250129
  Transmission Date: 20250409
  Serious: Yes (Hospitalization)
  Sender: BOEHRINGER INGELHEIM
  Company Number: AR-BoehringerIngelheim-2025-BI-004386

PATIENT
  Age: 76 Year
  Sex: Male
  Weight: 91.2 kg

DRUGS (7)
  1. JARDIANCE [Suspect]
     Active Substance: EMPAGLIFLOZIN
     Indication: Cardiac failure
  2. ASPIRIN [Concomitant]
     Active Substance: ASPIRIN
  3. FUROSEMIDE [Concomitant]
     Active Substance: FUROSEMIDE
  4. EPLERENONE [Concomitant]
     Active Substance: EPLERENONE
  5. VALSARTAN [Concomitant]
     Active Substance: VALSARTAN
  6. NEBIVOLOL [Concomitant]
     Active Substance: NEBIVOLOL
  7. AMLODIPINE [Concomitant]
     Active Substance: AMLODIPINE BESYLATE

REACTIONS (1)
  - Cardiovascular disorder [Unknown]
